FAERS Safety Report 12968534 (Version 1)
Quarter: 2016Q4

REPORT INFORMATION
  Report Type: Spontaneous
  Country: US (occurrence: US)
  Receive Date: 20161121
  Receipt Date: 20161121
  Transmission Date: 20170207
  Serious: No
  Sender: FDA-Public Use
  Company Number: None

PATIENT
  Age: 61 Year
  Sex: Female

DRUGS (1)
  1. REPATHA [Suspect]
     Active Substance: EVOLOCUMAB
     Dosage: EVERY 14 DAYS
     Route: 058
     Dates: start: 20161017

REACTIONS (2)
  - Blepharospasm [None]
  - Memory impairment [None]

NARRATIVE: CASE EVENT DATE: 20161011
